FAERS Safety Report 12632338 (Version 2)
Quarter: 2016Q3

REPORT INFORMATION
  Report Type: Spontaneous
  Country: US (occurrence: US)
  Receive Date: 20160808
  Receipt Date: 20160808
  Transmission Date: 20161109
  Serious: No
  Sender: FDA-Public Use
  Company Number: US-BEH-2016062557

PATIENT
  Sex: Female
  Weight: 78 kg

DRUGS (15)
  1. ACETAMINOPHEN. [Concomitant]
     Active Substance: ACETAMINOPHEN
  2. HIZENTRA [Suspect]
     Active Substance: HUMAN IMMUNOGLOBULIN G
     Indication: CHRONIC SINUSITIS
     Route: 058
  3. EPIPEN [Concomitant]
     Active Substance: EPINEPHRINE
  4. FIBER LAX [Concomitant]
     Active Substance: CALCIUM POLYCARBOPHIL
  5. MULTIVITAMIN [Concomitant]
     Active Substance: VITAMINS
  6. CYANOCOBALAMIN. [Concomitant]
     Active Substance: CYANOCOBALAMIN
  7. LEVOTHYROXINE. [Concomitant]
     Active Substance: LEVOTHYROXINE
  8. TRAMADOL. [Concomitant]
     Active Substance: TRAMADOL
  9. HIZENTRA [Suspect]
     Active Substance: HUMAN IMMUNOGLOBULIN G
     Indication: IMMUNODEFICIENCY COMMON VARIABLE
     Route: 058
  10. HIZENTRA [Suspect]
     Active Substance: HUMAN IMMUNOGLOBULIN G
     Route: 058
     Dates: start: 20120822
  11. BIOTIN [Concomitant]
     Active Substance: BIOTIN
  12. AMOXICILLIN. [Concomitant]
     Active Substance: AMOXICILLIN
  13. CALCIUM [Concomitant]
     Active Substance: CALCIUM
  14. CITALOPRAM [Concomitant]
     Active Substance: CITALOPRAM HYDROBROMIDE
  15. IRON [Concomitant]
     Active Substance: IRON

REACTIONS (1)
  - Bronchitis [Unknown]
